FAERS Safety Report 9093920 (Version 1)
Quarter: 2013Q1

REPORT INFORMATION
  Report Type: Report from Study
  Country: US (occurrence: US)
  Receive Date: 20130131
  Receipt Date: 20130131
  Transmission Date: 20140127
  Serious: No
  Sender: FDA-Public Use
  Company Number: US-ABBOTT-12P-163-1008936-00

PATIENT
  Age: 58 Year
  Sex: Female

DRUGS (8)
  1. HUMIRA [Suspect]
     Indication: RHEUMATOID ARTHRITIS
     Dates: start: 2008, end: 2011
  2. HUMIRA [Suspect]
     Indication: RHEUMATOID ARTHRITIS
  3. METFORMIN [Concomitant]
     Indication: DIABETES MELLITUS
     Dosage: 1000 MG DAILY
  4. GLUCOPHAGE [Concomitant]
     Indication: DIABETES MELLITUS
  5. LISINOPRIL [Concomitant]
     Indication: LIVER INJURY
  6. LISINOPRIL [Concomitant]
     Indication: PROPHYLAXIS
  7. LIPITOR [Concomitant]
     Indication: BLOOD CHOLESTEROL INCREASED
  8. JANUVIA [Concomitant]
     Indication: DIABETES MELLITUS

REACTIONS (8)
  - Injection site extravasation [Unknown]
  - Injection site pain [Recovered/Resolved]
  - Rheumatoid arthritis [Recovered/Resolved]
  - Injection site vesicles [Recovered/Resolved]
  - Pain in extremity [Recovered/Resolved]
  - Arthralgia [Recovered/Resolved]
  - Incorrect dose administered [Unknown]
  - Device malfunction [Unknown]
